FAERS Safety Report 17949687 (Version 41)
Quarter: 2023Q2

REPORT INFORMATION
  Report Type: Spontaneous
  Country: CA (occurrence: CA)
  Receive Date: 20200625
  Receipt Date: 20230623
  Transmission Date: 20230722
  Serious: Yes (Hospitalization, Other)
  Sender: FDA-Public Use
  Company Number: CA-CELLTRION INC.-2020CA022026

PATIENT

DRUGS (44)
  1. INFLECTRA [Suspect]
     Active Substance: INFLIXIMAB-DYYB
     Indication: Crohn^s disease
     Dosage: 500 MG, EVERY 8 WEEKS
     Route: 042
     Dates: start: 20200123
  2. INFLECTRA [Suspect]
     Active Substance: INFLIXIMAB-DYYB
     Dosage: 500 MG, EVERY 8 WEEKS
     Route: 042
     Dates: start: 20200305
  3. INFLECTRA [Suspect]
     Active Substance: INFLIXIMAB-DYYB
     Dosage: 500 MG, EVERY 8 WEEKS
     Route: 042
     Dates: start: 20200424
  4. INFLECTRA [Suspect]
     Active Substance: INFLIXIMAB-DYYB
     Dosage: 900 MG, EVERY 4 WEEKS
     Route: 042
     Dates: start: 20200521
  5. INFLECTRA [Suspect]
     Active Substance: INFLIXIMAB-DYYB
     Dosage: 900 MG, EVERY 4 WEEKS
     Route: 042
     Dates: start: 20201008
  6. INFLECTRA [Suspect]
     Active Substance: INFLIXIMAB-DYYB
     Dosage: 900 MG, EVERY 4 WEEKS
     Route: 042
     Dates: start: 20201105
  7. INFLECTRA [Suspect]
     Active Substance: INFLIXIMAB-DYYB
     Dosage: 900 MG, EVERY 4 WEEKS
     Route: 042
     Dates: start: 20201203
  8. INFLECTRA [Suspect]
     Active Substance: INFLIXIMAB-DYYB
     Dosage: 900 MG, EVERY 4 WEEKS
     Route: 042
     Dates: start: 20201203
  9. INFLECTRA [Suspect]
     Active Substance: INFLIXIMAB-DYYB
     Dosage: 900 MG, EVERY 4 WEEKS
     Route: 042
     Dates: start: 20201231
  10. INFLECTRA [Suspect]
     Active Substance: INFLIXIMAB-DYYB
     Dosage: 900 MG, EVERY 4 WEEKS
     Route: 042
     Dates: start: 20210126
  11. INFLECTRA [Suspect]
     Active Substance: INFLIXIMAB-DYYB
     Dosage: 900 MG, EVERY 4 WEEKS
     Route: 042
     Dates: start: 20210325
  12. INFLECTRA [Suspect]
     Active Substance: INFLIXIMAB-DYYB
     Dosage: 900 MG, EVERY 4 WEEKS
     Route: 042
     Dates: start: 20210422
  13. INFLECTRA [Suspect]
     Active Substance: INFLIXIMAB-DYYB
     Dosage: 900 MG, EVERY 4 WEEKS
     Route: 042
     Dates: start: 20210520
  14. INFLECTRA [Suspect]
     Active Substance: INFLIXIMAB-DYYB
     Dosage: 900 MG, EVERY 4 WEEKS
     Route: 042
     Dates: start: 20210616
  15. INFLECTRA [Suspect]
     Active Substance: INFLIXIMAB-DYYB
     Dosage: 900 MG, EVERY 4 WEEKS
     Route: 042
     Dates: start: 20210715
  16. INFLECTRA [Suspect]
     Active Substance: INFLIXIMAB-DYYB
     Dosage: 900 MG, EVERY 4 WEEKS
     Route: 042
     Dates: start: 20211007
  17. INFLECTRA [Suspect]
     Active Substance: INFLIXIMAB-DYYB
     Dosage: 900 MG, EVERY 4 WEEKS
     Route: 042
     Dates: start: 20211009
  18. INFLECTRA [Suspect]
     Active Substance: INFLIXIMAB-DYYB
     Dosage: 900 MG, EVERY 4 WEEKS
     Route: 042
     Dates: start: 20211104
  19. INFLECTRA [Suspect]
     Active Substance: INFLIXIMAB-DYYB
     Dosage: 900 MG, EVERY 4 WEEKS
     Route: 042
     Dates: start: 20220127
  20. INFLECTRA [Suspect]
     Active Substance: INFLIXIMAB-DYYB
     Dosage: 900 MG, EVERY 4 WEEKS
     Route: 042
     Dates: start: 20220224
  21. INFLECTRA [Suspect]
     Active Substance: INFLIXIMAB-DYYB
     Dosage: 900 MG, EVERY 4 WEEKS
     Route: 042
     Dates: start: 20220416
  22. INFLECTRA [Suspect]
     Active Substance: INFLIXIMAB-DYYB
     Dosage: 700 MG, EVERY 4 WEEKS, GIVEN IN HOSPITAL
     Route: 042
     Dates: start: 20220416
  23. INFLECTRA [Suspect]
     Active Substance: INFLIXIMAB-DYYB
     Dosage: 700 MG, EVERY 4 WEEKS
     Route: 042
     Dates: start: 20220907
  24. INFLECTRA [Suspect]
     Active Substance: INFLIXIMAB-DYYB
     Dosage: 700 MG, RELOADING FOR WEEK 0, FIRST DOSE
     Route: 042
     Dates: start: 20220913
  25. INFLECTRA [Suspect]
     Active Substance: INFLIXIMAB-DYYB
     Dosage: 700 MG WEEK 2 OF LNFLECTRA RELOAD
     Route: 042
     Dates: start: 20220927
  26. INFLECTRA [Suspect]
     Active Substance: INFLIXIMAB-DYYB
     Dosage: 700 MG, EVERY 4 WEEKS
     Route: 042
     Dates: start: 20221221
  27. INFLECTRA [Suspect]
     Active Substance: INFLIXIMAB-DYYB
     Dosage: 700 MG, EVERY 4 WEEKS
     Route: 042
     Dates: start: 20221221
  28. INFLECTRA [Suspect]
     Active Substance: INFLIXIMAB-DYYB
     Dosage: 700 MG, RELOAD 0-2-6 THEN EVERY 4WEEKS
     Route: 042
     Dates: start: 20230112
  29. INFLECTRA [Suspect]
     Active Substance: INFLIXIMAB-DYYB
     Dosage: 700 MG, RELOAD 0-2-6 THEN EVERY 4WEEKS
     Route: 042
     Dates: start: 20230112
  30. INFLECTRA [Suspect]
     Active Substance: INFLIXIMAB-DYYB
     Dosage: 700 MG EVERY 4 WEEKS
     Route: 042
     Dates: start: 20230323
  31. INFLECTRA [Suspect]
     Active Substance: INFLIXIMAB-DYYB
     Dosage: 700 MG EVERY 4 WEEKS
     Route: 042
     Dates: start: 20230323
  32. INFLECTRA [Suspect]
     Active Substance: INFLIXIMAB-DYYB
     Dosage: 700 MG Q4WEEKS
     Route: 042
     Dates: start: 20230420
  33. INFLECTRA [Suspect]
     Active Substance: INFLIXIMAB-DYYB
     Dosage: 700 MG, EVERY 4 WEEKS
     Route: 042
     Dates: start: 20230518
  34. INFLECTRA [Suspect]
     Active Substance: INFLIXIMAB-DYYB
     Dosage: 700 MG, EVERY 4 WEEKS
     Route: 042
     Dates: start: 20230518
  35. INFLECTRA [Suspect]
     Active Substance: INFLIXIMAB-DYYB
     Dosage: 700 MG, EVERY 4 WEEKS
     Route: 042
     Dates: start: 20230518
  36. INFLECTRA [Suspect]
     Active Substance: INFLIXIMAB-DYYB
     Dosage: 700 MG, EVERY 4 WEEKS
     Dates: start: 20230615
  37. INFLECTRA [Suspect]
     Active Substance: INFLIXIMAB-DYYB
     Dosage: 700 MG, EVERY 4 WEEKS
     Dates: start: 20230615
  38. METHOTREXATE [Concomitant]
     Active Substance: METHOTREXATE
     Indication: Immunosuppressant drug therapy
     Dosage: 0.6 ML, WEEKLY
     Route: 058
  39. METHOTREXATE [Concomitant]
     Active Substance: METHOTREXATE
     Indication: Crohn^s disease
     Dosage: 15 MG, WEEKLY
     Route: 058
  40. METHOTREXATE [Concomitant]
     Active Substance: METHOTREXATE
     Dosage: 0.8 ML, WEEKLY
     Route: 058
  41. METHOTREXATE [Concomitant]
     Active Substance: METHOTREXATE
     Dosage: 25 MG, WEEKLY
     Route: 058
  42. METHOTREXATE [Concomitant]
     Active Substance: METHOTREXATE
     Dosage: UNK
     Route: 058
     Dates: start: 20220417
  43. METHOTREXATE [Concomitant]
     Active Substance: METHOTREXATE
     Dosage: 25 MG, WEEKLY
     Route: 058
  44. MESALAMINE [Concomitant]
     Active Substance: MESALAMINE
     Indication: Crohn^s disease
     Dosage: 1000 MG, DAILY
     Route: 054

REACTIONS (31)
  - Pancreatitis [Unknown]
  - Sepsis [Unknown]
  - Abdominal pain [Unknown]
  - Rheumatoid arthritis [Unknown]
  - Haematochezia [Not Recovered/Not Resolved]
  - Type 1 diabetes mellitus [Unknown]
  - Cholecystectomy [Unknown]
  - Drug level below therapeutic [Unknown]
  - Off label use [Unknown]
  - Off label use [Unknown]
  - Intentional product use issue [Unknown]
  - Inappropriate schedule of product administration [Unknown]
  - Quality of life decreased [Unknown]
  - Faecal calprotectin increased [Recovering/Resolving]
  - Mucous stools [Unknown]
  - Fatigue [Unknown]
  - Arthralgia [Unknown]
  - Decubitus ulcer [Not Recovered/Not Resolved]
  - Ulcer [Unknown]
  - Staphylococcal infection [Unknown]
  - Weight decreased [Unknown]
  - Nausea [Recovered/Resolved]
  - Vomiting [Recovered/Resolved]
  - Chills [Recovered/Resolved]
  - Ear disorder [Recovered/Resolved]
  - Spinal osteoarthritis [Unknown]
  - Viral infection [Recovered/Resolved]
  - Biliary colic [Unknown]
  - Influenza [Recovered/Resolved]
  - Aphthous ulcer [Unknown]
  - Oral pain [Recovered/Resolved]

NARRATIVE: CASE EVENT DATE: 20200123
